FAERS Safety Report 5117102-7 (Version None)
Quarter: 2006Q3

REPORT INFORMATION
  Report Type: 
  Country: None (occurrence: None)
  Receive Date: 20060925
  Receipt Date: 20060914
  Transmission Date: 20061208
  Serious: Yes (Other)
  Sender: FDA-Public Use
  Company Number: 2006EU002577

PATIENT
  Age: 62 Year
  Sex: Female

DRUGS (7)
  1. VESICARE [Suspect]
     Indication: URINARY INCONTINENCE
     Dosage: 5 MG, ORAL
     Route: 048
     Dates: start: 20060320
  2. AMLODIPINE [Concomitant]
  3. BENDROFLUAZIDE                    (BENDROFLUMETHIAZIDE) [Concomitant]
  4. EZETIMIBE        (EZETIMIBE) [Concomitant]
  5. FLUCONAZOLE [Concomitant]
  6. OXYBUTYNIN CHLORIDE [Concomitant]
  7. RAMIPRIL [Concomitant]

REACTIONS (1)
  - SWELLING FACE [None]
